FAERS Safety Report 7358999-X (Version None)
Quarter: 2011Q1

REPORT INFORMATION
  Report Type: 
  Country: None (occurrence: None)
  Receive Date: 20110317
  Receipt Date: 20100927
  Transmission Date: 20110831
  Serious: Yes (Other)
  Sender: FDA-Public Use
  Company Number: US-BAYER-201033577NA

PATIENT
  Sex: Female

DRUGS (4)
  1. ADVIL LIQUI-GELS [Concomitant]
  2. YASMIN [Suspect]
     Indication: ACNE
  3. OCELLA [Suspect]
     Indication: ACNE
  4. YAZ [Suspect]
     Indication: ACNE

REACTIONS (4)
  - HYPERPLASTIC CHOLECYSTOPATHY [None]
  - INJURY [None]
  - GALLBLADDER CHOLESTEROLOSIS [None]
  - CHOLECYSTITIS CHRONIC [None]
